FAERS Safety Report 25031050 (Version 1)
Quarter: 2025Q1

REPORT INFORMATION
  Report Type: Report from Study
  Country: US (occurrence: US)
  Receive Date: 20250303
  Receipt Date: 20250303
  Transmission Date: 20250408
  Serious: Yes (Disabling)
  Sender: AMGEN
  Company Number: US-AMGEN-USASL2024249181

PATIENT
  Age: 61 Year
  Sex: Female

DRUGS (4)
  1. PROLIA [Suspect]
     Active Substance: DENOSUMAB
     Indication: Osteoporosis
     Dosage: 60 MILLIGRAM, Q6MO
     Route: 058
     Dates: end: 20240523
  2. BACLOFEN [Concomitant]
     Active Substance: BACLOFEN
     Indication: Pain
     Route: 065
  3. PROGESTERONE [Concomitant]
     Active Substance: PROGESTERONE
     Route: 065
  4. ESTROGENS [Concomitant]
     Active Substance: ESTROGENS
     Route: 065

REACTIONS (14)
  - Gastrointestinal disorder [Unknown]
  - Mucosal disorder [Unknown]
  - Mixed connective tissue disease [Unknown]
  - Blood immunoglobulin A abnormal [Unknown]
  - Neuralgia [Unknown]
  - Oedema [Unknown]
  - Soft tissue injury [Unknown]
  - Tongue disorder [Unknown]
  - Cognitive disorder [Unknown]
  - Sinus disorder [Unknown]
  - Skin exfoliation [Unknown]
  - Muscle spasms [Unknown]
  - Dermatitis [Unknown]
  - Pain in extremity [Unknown]

NARRATIVE: CASE EVENT DATE: 20240101
